FAERS Safety Report 5629978-5 (Version None)
Quarter: 2008Q1

REPORT INFORMATION
  Report Type: 
  Country: None (occurrence: None)
  Receive Date: 20080218
  Receipt Date: 20080206
  Transmission Date: 20080703
  Serious: Yes (Hospitalization)
  Sender: FDA-Public Use
  Company Number: JP-ROCHE-546348

PATIENT
  Age: 48 Year
  Sex: Male

DRUGS (3)
  1. CELLCEPT [Suspect]
     Route: 065
  2. CYCLOSPORINE [Concomitant]
  3. PREDNISOLONE [Concomitant]

REACTIONS (1)
  - COLITIS ULCERATIVE [None]
